FAERS Safety Report 6194538-7 (Version None)
Quarter: 2009Q2

REPORT INFORMATION
  Report Type: 
  Country: None (occurrence: None)
  Receive Date: 20090519
  Receipt Date: 20071102
  Transmission Date: 20091009
  Serious: Yes (Hospitalization, Other)
  Sender: FDA-Public Use
  Company Number: US-ASTRAZENECA-2007UW02448

PATIENT
  Age: 560 Month
  Sex: Male
  Weight: 93 kg

DRUGS (5)
  1. SEROQUEL [Suspect]
     Indication: INSOMNIA
     Dosage: 25 MG TO 50 MG
     Route: 048
     Dates: start: 20050301, end: 20060301
  2. SEROQUEL [Suspect]
     Dosage: 25 TO 50MG
     Route: 048
     Dates: start: 20050720
  3. SOMA [Concomitant]
     Dosage: 350MG TWO TABLETS AT NIGHT
     Route: 048
  4. NEXIUM [Concomitant]
     Route: 048
  5. NORCO [Concomitant]
     Route: 048

REACTIONS (9)
  - ABDOMINAL PAIN [None]
  - DIABETES MELLITUS [None]
  - HYPERGLYCAEMIA [None]
  - HYPOKALAEMIA [None]
  - LEUKOCYTOSIS [None]
  - LYMPHADENOPATHY [None]
  - PANCREATITIS [None]
  - PANCREATITIS ACUTE [None]
  - PULMONARY EMBOLISM [None]
